FAERS Safety Report 9240398 (Version 1)
Quarter: 2013Q2

REPORT INFORMATION
  Report Type: Spontaneous
  Country: ES (occurrence: None)
  Receive Date: 20130417
  Receipt Date: 20130417
  Transmission Date: 20140414
  Serious: Yes (Hospitalization)
  Sender: FDA-Public Use
  Company Number: ES-20130012

PATIENT
  Age: 75 Year
  Sex: 0

DRUGS (1)
  1. DOTAREM [Suspect]
     Indication: NUCLEAR MAGNETIC RESONANCE IMAGING
     Dosage: 0.3 MMOL/KG SINGLE DOSE (30 ML)
     Route: 042
     Dates: start: 20130302, end: 20130302

REACTIONS (3)
  - Hypoventilation [None]
  - Depressed level of consciousness [None]
  - Rash [None]
